FAERS Safety Report 8560111 (Version 3)
Quarter: 2013Q2

REPORT INFORMATION
  Report Type: Report from Study
  Country: CA (occurrence: CA)
  Receive Date: 20120514
  Receipt Date: 20130417
  Transmission Date: 20140414
  Serious: Yes (Other)
  Sender: FDA-Public Use
  Company Number: PHHY2012CA040030

PATIENT
  Age: 64 Year
  Sex: Female

DRUGS (4)
  1. ACLASTA [Suspect]
     Indication: OSTEOPOROSIS
     Dosage: UNK UKN, UNK
     Route: 042
     Dates: start: 20090323
  2. ACLASTA [Suspect]
     Dosage: UNK UKN, UNK
     Route: 042
     Dates: start: 20100329
  3. ACLASTA [Suspect]
     Dosage: UNK UKN, UNK
     Route: 042
     Dates: start: 20110601
  4. ACLASTA [Suspect]
     Dosage: UNK
     Route: 042
     Dates: start: 20120606

REACTIONS (6)
  - Breast cancer in situ [Recovered/Resolved with Sequelae]
  - Dysplasia [Recovered/Resolved with Sequelae]
  - Skin hyperpigmentation [Unknown]
  - Nipple disorder [Unknown]
  - Blood cholesterol increased [Unknown]
  - Erythema [Unknown]
